FAERS Safety Report 6657039-5 (Version None)
Quarter: 2010Q1

REPORT INFORMATION
  Report Type: 
  Country: None (occurrence: None)
  Receive Date: 20100330
  Receipt Date: 20091218
  Transmission Date: 20100710
  Serious: Yes (Hospitalization)
  Sender: FDA-Public Use
  Company Number: JP-JNJFOC-20090404837

PATIENT
  Sex: Female

DRUGS (15)
  1. CRAVIT [Suspect]
     Indication: URINARY TRACT INFECTION
     Route: 048
  2. DIOVAN [Concomitant]
     Indication: HYPERTENSION
     Route: 048
  3. LASIX [Concomitant]
     Indication: CARDIAC FAILURE
     Route: 048
  4. CARVEDILOL [Concomitant]
     Indication: CARDIAC FAILURE
     Route: 048
  5. CARVEDILOL [Concomitant]
     Route: 048
  6. FLUVASTATIN SODIUM [Concomitant]
     Indication: DYSLIPIDAEMIA
     Route: 048
  7. ASPIRIN [Concomitant]
     Indication: MYOCARDIAL ISCHAEMIA
     Route: 048
  8. PARIET [Concomitant]
     Indication: GASTRIC ULCER
     Route: 048
  9. WARFARIN SODIUM [Concomitant]
     Indication: ATRIAL FIBRILLATION
     Route: 048
  10. WARFARIN SODIUM [Concomitant]
     Route: 048
  11. WARFARIN POTASSIUM [Concomitant]
     Route: 065
  12. GLYSENNID [Concomitant]
     Dosage: AT THE TIME OF CONSTIPATION
     Route: 065
  13. THYRADIN-S [Concomitant]
     Route: 065
  14. SODIUM BICARBONATE [Concomitant]
     Route: 065
  15. HEPARIN SODIUM [Concomitant]
     Indication: ATRIAL FIBRILLATION
     Route: 041

REACTIONS (1)
  - RENAL TUBULAR DISORDER [None]
